FAERS Safety Report 7368942-5 (Version None)
Quarter: 2011Q1

REPORT INFORMATION
  Report Type: 
  Country: None (occurrence: None)
  Receive Date: 20110308
  Receipt Date: 20110218
  Transmission Date: 20110831
  Serious: Yes (Other)
  Sender: FDA-Public Use
  Company Number: 2011SP009258

PATIENT
  Age: 10 Year
  Sex: Female

DRUGS (2)
  1. DEXAMETHASONE SODIUM PHOSPHATE [Suspect]
     Indication: JUVENILE ARTHRITIS
  2. METHYLPREDNISOLONE SODIUM SUCCINATE [Suspect]
     Indication: JUVENILE ARTHRITIS

REACTIONS (6)
  - SWELLING [None]
  - TACHYCARDIA [None]
  - HYPERSENSITIVITY [None]
  - URTICARIA [None]
  - ANAPHYLACTIC REACTION [None]
  - CHEST DISCOMFORT [None]
